FAERS Safety Report 4708765-6 (Version None)
Quarter: 2005Q3

REPORT INFORMATION
  Report Type: 
  Country: None (occurrence: None)
  Receive Date: 20050705
  Receipt Date: 20050623
  Transmission Date: 20060218
  Serious: Yes (Hospitalization, Congenital Anomaly)
  Sender: FDA-Public Use
  Company Number: 2005014292

PATIENT
  Sex: Male
  Weight: 3.81 kg

DRUGS (3)
  1. ALPRAZOLAM [Suspect]
     Indication: ANXIETY
     Dosage: 0.8 MG (0.8 MG, 1 IN 1D)
     Dates: start: 20031230
  2. DEPAS (ETIZOLAM) [Suspect]
     Indication: ANXIETY
     Dosage: 3 MG (1 MG, 3 IN 1 D)
     Dates: start: 20040107
  3. LUDIOMIL [Suspect]
     Indication: DEPRESSION
     Dosage: 50 MG (25 MG, 2 IN 1 D)
     Dates: start: 20031230

REACTIONS (13)
  - CONGENITAL ANOMALY [None]
  - DECREASED ACTIVITY [None]
  - DEHYDRATION [None]
  - DRUG EXPOSURE DURING PREGNANCY [None]
  - DRUG WITHDRAWAL SYNDROME NEONATAL [None]
  - FEEDING DISORDER NEONATAL [None]
  - MUSCULAR DYSTROPHY [None]
  - NEONATAL DISORDER [None]
  - NEONATAL INFECTION [None]
  - RHABDOMYOLYSIS [None]
  - SOMNOLENCE NEONATAL [None]
  - STRESS [None]
  - WEIGHT DECREASE NEONATAL [None]
